FAERS Safety Report 25948132 (Version 1)
Quarter: 2025Q4

REPORT INFORMATION
  Report Type: Spontaneous
  Country: US (occurrence: None)
  Receive Date: 20251017
  Receipt Date: 20251017
  Transmission Date: 20260117
  Serious: No
  Sender: FDA-CTU
  Company Number: None

PATIENT
  Sex: Male

DRUGS (1)
  1. JAKAFI [Suspect]
     Active Substance: RUXOLITINIB
     Dosage: 5 MG BID ORAL ?
     Route: 048

REACTIONS (4)
  - Malaise [None]
  - Hypophagia [None]
  - Red blood cell count decreased [None]
  - Asthenia [None]
